FAERS Safety Report 9931705 (Version 1)
Quarter: 2014Q1

REPORT INFORMATION
  Report Type: Spontaneous
  Country: US (occurrence: None)
  Receive Date: 20140227
  Receipt Date: 20140227
  Transmission Date: 20141002
  Serious: Yes (Other)
  Sender: FDA-Public Use
  Company Number: None

PATIENT
  Age: 67 Year
  Sex: Female
  Weight: 81.65 kg

DRUGS (12)
  1. LEVOFLOXACIN 500 MG TABLETS [Suspect]
     Indication: BRONCHITIS
     Route: 048
     Dates: start: 20130131, end: 20140209
  2. CPAP [Concomitant]
  3. WELLBUTRIN [Concomitant]
  4. CELEXA [Concomitant]
  5. LATUDA [Concomitant]
  6. LAMICTAL [Concomitant]
  7. BENICAR [Concomitant]
  8. NORVASC [Concomitant]
  9. SYNTHROID [Concomitant]
  10. CALCIUM [Concomitant]
  11. CENTRUM SILVER [Concomitant]
  12. MULTI B VITAMINS [Concomitant]

REACTIONS (8)
  - Asthenia [None]
  - Fatigue [None]
  - Nightmare [None]
  - Depression [None]
  - Confusional state [None]
  - Agitation [None]
  - Arthralgia [None]
  - Vision blurred [None]
